FAERS Safety Report 8052638-0 (Version None)
Quarter: 2011Q4

REPORT INFORMATION
  Report Type: 
  Country: None (occurrence: None)
  Receive Date: 20111228
  Receipt Date: 20111221
  Transmission Date: 20120403
  Serious: Yes (Death)
  Sender: FDA-Public Use
  Company Number: 2011030627

PATIENT

DRUGS (2)
  1. PLASMA [Concomitant]
  2. HAEMOCOMPLETTAN P (FIBRINOGEN CONCENTRATE (HUMAN)) [Suspect]
     Indication: VASCULAR OPERATION
     Dosage: 4 G, 6 G

REACTIONS (3)
  - CEREBRAL INFARCTION [None]
  - HAEMORRHAGE [None]
  - SEPSIS [None]
